FAERS Safety Report 12218643 (Version 1)
Quarter: 2016Q1

REPORT INFORMATION
  Report Type: Spontaneous
  Country: US (occurrence: US)
  Receive Date: 20160329
  Receipt Date: 20160329
  Transmission Date: 20160526
  Serious: Yes (Other)
  Sender: FDA-Public Use
  Company Number: US-JNJFOC-20160321472

PATIENT
  Age: 9 Year
  Sex: Male
  Weight: 29.48 kg

DRUGS (1)
  1. CONCERTA [Suspect]
     Active Substance: METHYLPHENIDATE HYDROCHLORIDE
     Indication: ATTENTION DEFICIT/HYPERACTIVITY DISORDER
     Route: 048
     Dates: start: 20160315

REACTIONS (8)
  - Depressed level of consciousness [Recovered/Resolved]
  - Somnolence [Recovered/Resolved]
  - Abdominal discomfort [Recovered/Resolved]
  - Decreased appetite [Not Recovered/Not Resolved]
  - Hyperhidrosis [Recovered/Resolved]
  - Dizziness [Recovered/Resolved]
  - Inappropriate schedule of drug administration [Unknown]
  - Insomnia [Recovered/Resolved]

NARRATIVE: CASE EVENT DATE: 201603
